FAERS Safety Report 4443053-7 (Version None)
Quarter: 2004Q3

REPORT INFORMATION
  Report Type: 
  Country: None (occurrence: None)
  Receive Date: 20040903
  Receipt Date: 20040601
  Transmission Date: 20050211
  Serious: Yes (Other)
  Sender: FDA-Public Use
  Company Number: 2004UW11387

PATIENT
  Age: 72 Year
  Sex: Female
  Weight: 103.4201 kg

DRUGS (4)
  1. CRESTOR [Suspect]
     Indication: HYPERCHOLESTEROLAEMIA
     Dosage: 10 MG QD PO
     Route: 048
  2. VOLTAREN ^NORVARTIS^ [Concomitant]
  3. ARTHRITIS BAYER TIMED RELEASE ASPIRIN [Concomitant]
  4. MULTIVITAMIN [Concomitant]

REACTIONS (2)
  - OEDEMA PERIPHERAL [None]
  - WEIGHT INCREASED [None]
